FAERS Safety Report 6757129-2 (Version None)
Quarter: 2010Q2

REPORT INFORMATION
  Report Type: 
  Country: None (occurrence: None)
  Receive Date: 20100605
  Receipt Date: 20100527
  Transmission Date: 20101027
  Serious: Yes (Hospitalization, Other)
  Sender: FDA-Public Use
  Company Number: US-ROCHE-700939

PATIENT
  Age: 72 Year
  Sex: Female

DRUGS (1)
  1. BONIVA [Suspect]
     Indication: DRUG USE FOR UNKNOWN INDICATION
     Route: 042

REACTIONS (6)
  - CONVULSION [None]
  - FALL [None]
  - HIP FRACTURE [None]
  - INJECTION SITE SWELLING [None]
  - INJECTION SITE THROMBOSIS [None]
  - PATHOLOGICAL FRACTURE [None]
